FAERS Safety Report 9126019 (Version 2)
Quarter: 2013Q2

REPORT INFORMATION
  Report Type: Report from Study
  Country: DE (occurrence: DE)
  Receive Date: 20130121
  Receipt Date: 20130603
  Transmission Date: 20140414
  Serious: Yes (Other)
  Sender: FDA-Public Use
  Company Number: DE-SANOFI-AVENTIS-2013SA003851

PATIENT
  Age: 55 Year
  Sex: Male
  Weight: 115 kg

DRUGS (6)
  1. MULTAQ [Suspect]
     Indication: ATRIAL FIBRILLATION
     Route: 048
     Dates: start: 20120405, end: 201212
  2. RAMIPRIL [Concomitant]
     Dosage: 2.5 / 12.5 MG
  3. MARCUMAR [Concomitant]
     Dates: end: 20120626
  4. VIT K ANTAGONISTS [Concomitant]
  5. ACETYLSALICYLIC ACID [Concomitant]
  6. PLATELET AGGREGATION INHIBITORS [Concomitant]
     Dates: start: 20120626

REACTIONS (2)
  - Hepatic cirrhosis [Not Recovered/Not Resolved]
  - Alanine aminotransferase increased [Not Recovered/Not Resolved]
